FAERS Safety Report 13946634 (Version 6)
Quarter: 2018Q1

REPORT INFORMATION
  Report Type: Report from Study
  Country: JP (occurrence: JP)
  Receive Date: 20170907
  Receipt Date: 20180124
  Transmission Date: 20180508
  Serious: Yes (Death, Other)
  Sender: FDA-Public Use
  Company Number: JP-INCYTE CORPORATION-2017IN007363

PATIENT

DRUGS (7)
  1. JAKAVI [Suspect]
     Active Substance: RUXOLITINIB
     Dosage: 10 MG, BID
     Route: 048
     Dates: start: 20160318
  2. JAKAVI [Suspect]
     Active Substance: RUXOLITINIB
     Dosage: 5 MG, BID
     Route: 048
     Dates: start: 20160219, end: 20160317
  3. FUROSEMIDE. [Concomitant]
     Active Substance: FUROSEMIDE
     Dosage: 20 MG, UNK
     Route: 048
     Dates: start: 20160415, end: 20160619
  4. SPIRONOLACTONE. [Concomitant]
     Active Substance: SPIRONOLACTONE
     Indication: MYELOFIBROSIS
     Dosage: 25 MG, UNK
     Route: 048
     Dates: start: 20160620
  5. JAKAVI [Suspect]
     Active Substance: RUXOLITINIB
     Indication: MYELOFIBROSIS
     Dosage: 5 MG, QD
     Route: 048
     Dates: start: 20160205, end: 20160218
  6. FUROSEMIDE. [Concomitant]
     Active Substance: FUROSEMIDE
     Dosage: 40 MG, UNK
     Route: 048
     Dates: start: 20160620
  7. FUROSEMIDE. [Concomitant]
     Active Substance: FUROSEMIDE
     Indication: MYELOFIBROSIS
     Dosage: 10 MG, QD
     Route: 048
     Dates: start: 20150108, end: 20160414

REACTIONS (10)
  - Nutritional condition abnormal [Fatal]
  - Weight increased [Fatal]
  - Platelet count decreased [Not Recovered/Not Resolved]
  - Myelofibrosis [Fatal]
  - Abdominal distension [Fatal]
  - Blood uric acid increased [Unknown]
  - Ascites [Recovering/Resolving]
  - Anaemia [Unknown]
  - Decreased appetite [Fatal]
  - White blood cell count increased [Fatal]

NARRATIVE: CASE EVENT DATE: 20160415
